FAERS Safety Report 5763900-6 (Version None)
Quarter: 2008Q2

REPORT INFORMATION
  Report Type: 
  Country: None (occurrence: None)
  Receive Date: 20080606
  Receipt Date: 20080606
  Transmission Date: 20081010
  Serious: Yes (Other)
  Sender: FDA-Public Use
  Company Number: None

PATIENT
  Sex: Female
  Weight: 19.5 kg

DRUGS (16)
  1. ADALIMUMAB 40MG/0.8ML ABBOTT [Suspect]
     Indication: ARTHRITIS
     Dosage: 20MG -0.4ML- ONCE WEEKLY SQ
     Route: 058
     Dates: start: 20061001, end: 20080201
  2. METHOTREXATE [Suspect]
     Indication: ARTHRITIS
     Dosage: 15MG ONCE WEEKLY SQ SEVERAL YEARS
     Route: 058
  3. PREDNISONE TAB [Concomitant]
  4. FOLIC ACID [Concomitant]
  5. CELEBREX [Concomitant]
  6. NEXIUM [Concomitant]
  7. METHADONE HCL [Concomitant]
  8. CALCIUM [Concomitant]
  9. VITAMIN C SUPPLEMENT [Concomitant]
  10. ETANERCEPT [Concomitant]
  11. LEFLUNOMIDE [Concomitant]
  12. THALIDOMIDE [Concomitant]
  13. CYCLOPHOSPHAMIDE [Concomitant]
  14. KINERET [Concomitant]
  15. CORTICOSTEROID JOINT INJECTIONS [Concomitant]
  16. RITUXIMAB [Concomitant]

REACTIONS (1)
  - HODGKIN'S DISEASE STAGE II [None]
